FAERS Safety Report 16130364 (Version 1)
Quarter: 2019Q1

REPORT INFORMATION
  Report Type: Spontaneous
  Country: US (occurrence: US)
  Receive Date: 20190328
  Receipt Date: 20190328
  Transmission Date: 20190418
  Serious: No
  Sender: FDA-Public Use
  Company Number: US-INDIVIOR LIMITED-INDV-117208-2019

PATIENT
  Age: 35 Year
  Sex: Male

DRUGS (1)
  1. SUBLOCADE [Suspect]
     Active Substance: BUPRENORPHINE
     Indication: DRUG USE DISORDER
     Dosage: 300 MG, QMO (2 DOSES)
     Route: 058
     Dates: start: 20181130

REACTIONS (6)
  - Mental impairment [Unknown]
  - Injection site pain [Recovered/Resolved]
  - Headache [Unknown]
  - Malaise [Unknown]
  - Somnolence [Unknown]
  - Drug intolerance [Unknown]

NARRATIVE: CASE EVENT DATE: 201901
